FAERS Safety Report 5661836-2 (Version None)
Quarter: 2008Q1

REPORT INFORMATION
  Report Type: 
  Country: None (occurrence: None)
  Receive Date: 20080312
  Receipt Date: 20080306
  Transmission Date: 20080703
  Serious: Yes (Hospitalization)
  Sender: FDA-Public Use
  Company Number: US-BRISTOL-MYERS SQUIBB COMPANY-14103956

PATIENT
  Age: 67 Year
  Sex: Male
  Weight: 58 kg

DRUGS (4)
  1. ERBITUX [Suspect]
     Indication: NEOPLASM MALIGNANT
     Dosage: GIVEN ON DAY 1 + 22 WITH ACCELERATED RADIATION THERAPY.
     Dates: start: 20080225, end: 20080225
  2. CISPLATIN [Suspect]
     Indication: NEOPLASM MALIGNANT
     Dates: start: 20080204, end: 20080204
  3. RADIATION THERAPY [Suspect]
     Indication: NEOPLASM MALIGNANT
     Dosage: TOTAL DOSE = 72 GY.NUMBER FO FRACTION 42.
     Dates: start: 20080227, end: 20080227
  4. CIPRO [Concomitant]
     Indication: PROPHYLAXIS

REACTIONS (1)
  - CEREBRAL ISCHAEMIA [None]
